FAERS Safety Report 15585227 (Version 1)
Quarter: 2018Q4

REPORT INFORMATION
  Report Type: Spontaneous
  Country: US (occurrence: US)
  Receive Date: 20181105
  Receipt Date: 20181105
  Transmission Date: 20190205
  Serious: Yes (Other)
  Sender: FDA-Public Use
  Company Number: US-TEVA-2018-US-972691

PATIENT
  Age: 4 Decade
  Sex: Male

DRUGS (4)
  1. ROSUVASTATIN. [Suspect]
     Active Substance: ROSUVASTATIN
     Indication: LIPIDS INCREASED
     Dosage: 5 MILLIGRAM DAILY;
     Route: 048
     Dates: start: 201409
  2. COENZYME Q10 [Concomitant]
     Active Substance: UBIDECARENONE
     Indication: LIPIDS INCREASED
     Route: 048
  3. PRAVASTATIN. [Suspect]
     Active Substance: PRAVASTATIN
     Indication: LIPIDS INCREASED
     Dosage: 20 MILLIGRAM DAILY;
     Route: 048
     Dates: start: 201608
  4. ROSUVASTATIN. [Suspect]
     Active Substance: ROSUVASTATIN
     Indication: LIPIDS INCREASED
     Dosage: 2.5 MILLIGRAM DAILY;
     Route: 048
     Dates: start: 201512, end: 201602

REACTIONS (2)
  - Tendon disorder [Not Recovered/Not Resolved]
  - Tendon rupture [Recovered/Resolved]

NARRATIVE: CASE EVENT DATE: 201503
